FAERS Safety Report 18931234 (Version 3)
Quarter: 2021Q3

REPORT INFORMATION
  Report Type: Spontaneous
  Country: US (occurrence: US)
  Receive Date: 20210224
  Receipt Date: 20210921
  Transmission Date: 20211014
  Serious: Yes (Other)
  Sender: FDA-Public Use
  Company Number: US-JNJFOC-20210232991

PATIENT
  Age: 4 Decade
  Sex: Female

DRUGS (6)
  1. ELMIRON [Suspect]
     Active Substance: PENTOSAN POLYSULFATE SODIUM
     Indication: PAIN
     Route: 048
     Dates: start: 200707, end: 2011
  2. MIRENA [Concomitant]
     Active Substance: LEVONORGESTREL
     Indication: CONTRACEPTION
     Route: 065
     Dates: start: 2012
  3. ELMIRON [Suspect]
     Active Substance: PENTOSAN POLYSULFATE SODIUM
     Indication: CYSTITIS INTERSTITIAL
     Route: 048
     Dates: start: 2007
  4. IMIPRAMINE [Concomitant]
     Active Substance: IMIPRAMINE
     Indication: CYSTITIS INTERSTITIAL
     Route: 065
  5. ELMIRON [Suspect]
     Active Substance: PENTOSAN POLYSULFATE SODIUM
     Indication: MICTURITION URGENCY
     Dosage: 200 MG 2 TIMES TWICE DAILY AND 100 MG THRICE DAILY
     Route: 048
     Dates: start: 2012, end: 2018
  6. VITAMIN D [ERGOCALCIFEROL] [Concomitant]
     Active Substance: ERGOCALCIFEROL
     Indication: VITAMIN D DECREASED
     Route: 065
     Dates: start: 2019, end: 2019

REACTIONS (6)
  - Anxiety [Not Recovered/Not Resolved]
  - Off label use [Unknown]
  - Macular degeneration [Not Recovered/Not Resolved]
  - Product use issue [Unknown]
  - Maculopathy [Not Recovered/Not Resolved]
  - Depression [Not Recovered/Not Resolved]

NARRATIVE: CASE EVENT DATE: 2012
